FAERS Safety Report 12909115 (Version 1)
Quarter: 2016Q4

REPORT INFORMATION
  Report Type: Spontaneous
  Country: US (occurrence: US)
  Receive Date: 20161103
  Receipt Date: 20161103
  Transmission Date: 20170207
  Serious: No
  Sender: FDA-Public Use
  Company Number: US-JAZZ-2016-US-017083

PATIENT
  Sex: Female
  Weight: 74.83 kg

DRUGS (33)
  1. XYREM [Suspect]
     Active Substance: SODIUM OXYBATE
     Indication: FIBROMYALGIA
     Dosage: 2.25 G, BID
     Route: 048
     Dates: start: 200709, end: 200710
  2. XYREM [Suspect]
     Active Substance: SODIUM OXYBATE
     Dosage: 4.5 G, BID
     Route: 048
     Dates: start: 201103
  3. CALTRATE [Concomitant]
     Active Substance: CALCIUM CARBONATE
  4. GEMFIBROZIL. [Concomitant]
     Active Substance: GEMFIBROZIL
  5. GLUCOSAMINE AND CHONDROITIN [Concomitant]
     Active Substance: CHONDROITIN SULFATE (BOVINE)\GLUCOSAMINE HYDROCHLORIDE
  6. NITROGLYCERIN. [Concomitant]
     Active Substance: NITROGLYCERIN
  7. OCUVITE EYE + MULTI [Concomitant]
  8. LIDODERM [Concomitant]
     Active Substance: LIDOCAINE
  9. LYRICA [Concomitant]
     Active Substance: PREGABALIN
  10. ALPRAZOLAM. [Concomitant]
     Active Substance: ALPRAZOLAM
  11. B COMPLEX WITH FOLIC ACID [Concomitant]
  12. MULTIVITAMIN [Concomitant]
     Active Substance: VITAMINS
  13. MODUCARE [Concomitant]
  14. CILOXAN [Concomitant]
     Active Substance: CIPROFLOXACIN HYDROCHLORIDE
  15. RESTASIS [Concomitant]
     Active Substance: CYCLOSPORINE
  16. XYREM [Suspect]
     Active Substance: SODIUM OXYBATE
     Indication: INSOMNIA
     Dosage: DOSE ADJUSTMENTS
     Route: 048
     Dates: start: 200710, end: 201103
  17. LIVALO [Concomitant]
     Active Substance: PITAVASTATIN CALCIUM
  18. KRISTALOSE [Concomitant]
     Active Substance: LACTULOSE
  19. PRIMIDONE. [Concomitant]
     Active Substance: PRIMIDONE
  20. CRESTOR [Concomitant]
     Active Substance: ROSUVASTATIN CALCIUM
  21. VITAMIN D3 [Concomitant]
     Active Substance: CHOLECALCIFEROL
  22. BESIVANCE [Concomitant]
     Active Substance: BESIFLOXACIN
  23. PROPRANOLOL [Concomitant]
     Active Substance: PROPRANOLOL\PROPRANOLOL HYDROCHLORIDE
  24. VITAMIN C [Concomitant]
     Active Substance: ASCORBIC ACID
  25. ERYTHROMYCIN. [Concomitant]
     Active Substance: ERYTHROMYCIN
  26. SYSTANE (HYPROMELLOSE 2910 (4000 MPA.S)) [Concomitant]
     Active Substance: HYPROMELLOSE 2910 (4000 MPA.S)
  27. ATROPINE SULATE [Concomitant]
     Active Substance: ATROPINE SULFATE
  28. ZOLPIDEM TARTRATE. [Concomitant]
     Active Substance: ZOLPIDEM TARTRATE
  29. L-GLUTAMINE [Concomitant]
  30. METRONIDAZOLE. [Concomitant]
     Active Substance: METRONIDAZOLE
  31. DUREZOL [Concomitant]
     Active Substance: DIFLUPREDNATE
  32. ILEVRO [Concomitant]
     Active Substance: NEPAFENAC
  33. SAVELLA [Concomitant]
     Active Substance: MILNACIPRAN HYDROCHLORIDE

REACTIONS (4)
  - Therapeutic response unexpected [Unknown]
  - Cardiac disorder [Unknown]
  - Urinary tract infection [Recovering/Resolving]
  - Pre-existing condition improved [Unknown]

NARRATIVE: CASE EVENT DATE: 2011
